FAERS Safety Report 5110258-1 (Version None)
Quarter: 2006Q3

REPORT INFORMATION
  Report Type: 
  Country: None (occurrence: None)
  Receive Date: 20060921
  Receipt Date: 20060725
  Transmission Date: 20061208
  Serious: Yes (Life-Threatening, Hospitalization)
  Sender: FDA-Public Use
  Company Number: JP-JPN-A200602816

PATIENT
  Age: 50 Year
  Sex: Female

DRUGS (4)
  1. PAXIL [Suspect]
     Indication: DEPRESSION
     Dosage: 20MG PER DAY
     Route: 048
     Dates: start: 20040916, end: 20060718
  2. DOGMATYL [Suspect]
     Indication: DEPRESSION
     Dosage: 50MG THREE TIMES PER DAY
     Route: 048
     Dates: start: 20040916, end: 20060718
  3. ACETAMINOPHEN [Concomitant]
     Route: 048
  4. SOLANAX [Concomitant]
     Indication: ANXIETY DISORDER
     Dosage: 1.2MG PER DAY
     Route: 048
     Dates: start: 20000522

REACTIONS (8)
  - BLOOD SODIUM INCREASED [None]
  - BLOOD UREA DECREASED [None]
  - BLOOD URIC ACID INCREASED [None]
  - GRAND MAL CONVULSION [None]
  - INAPPROPRIATE ANTIDIURETIC HORMONE SECRETION [None]
  - LOSS OF CONSCIOUSNESS [None]
  - SPECIFIC GRAVITY URINE INCREASED [None]
  - URINE SODIUM INCREASED [None]
